FAERS Safety Report 6670945-0 (Version None)
Quarter: 2010Q2

REPORT INFORMATION
  Report Type: 
  Country: None (occurrence: None)
  Receive Date: 20100407
  Receipt Date: 20100330
  Transmission Date: 20101027
  Serious: Yes (Hospitalization)
  Sender: FDA-Public Use
  Company Number: US-SANOFI-AVENTIS-2010SA019455

PATIENT
  Age: 42 Year
  Sex: Male

DRUGS (7)
  1. LANTUS [Suspect]
     Indication: TYPE 2 DIABETES MELLITUS
     Dosage: DOSE:40 UNIT(S)
     Route: 058
     Dates: start: 20090101
  2. CLONAZEPAM [Concomitant]
  3. RESTORIL [Concomitant]
     Indication: SLEEP DISORDER
  4. ZOLOFT [Concomitant]
  5. DEPAKOTE [Concomitant]
  6. METOPROLOL TARTRATE [Concomitant]
  7. LIPITOR [Concomitant]

REACTIONS (1)
  - MYOCARDIAL INFARCTION [None]
